FAERS Safety Report 8475059-5 (Version None)
Quarter: 2012Q2

REPORT INFORMATION
  Report Type: 
  Country: None (occurrence: None)
  Receive Date: 20120628
  Receipt Date: 20120622
  Transmission Date: 20120825
  Serious: No
  Sender: FDA-Public Use
  Company Number: US-PFIZER INC-2012120632

PATIENT
  Sex: Female

DRUGS (6)
  1. AMARYL [Concomitant]
     Dosage: 4 MG, UNK
  2. ONGLYZA [Concomitant]
     Dosage: 5 MG, UNK
  3. METFORMIN [Concomitant]
     Dosage: 500 MG, 1X/DAY
  4. LISINOPRIL [Concomitant]
     Dosage: 10 MG, UNK
  5. LIPITOR [Suspect]
     Dosage: 20 MG, UNK
  6. LEVOTHYROXINE [Concomitant]

REACTIONS (2)
  - MYALGIA [None]
  - MUSCULOSKELETAL CHEST PAIN [None]
